FAERS Safety Report 18341097 (Version 1)
Quarter: 2020Q4

REPORT INFORMATION
  Report Type: Spontaneous
  Country: PL (occurrence: PL)
  Receive Date: 20201003
  Receipt Date: 20201003
  Transmission Date: 20210113
  Serious: Yes (Other)
  Sender: FDA-Public Use
  Company Number: PL-TEVA-2020-PL-1834547

PATIENT
  Age: 46 Year
  Weight: 68 kg

DRUGS (4)
  1. FLUOROURACIL. [Suspect]
     Active Substance: FLUOROURACIL
     Indication: GASTRIC CANCER
     Route: 041
     Dates: start: 20180109, end: 20180220
  2. FLUOROURACIL. [Suspect]
     Active Substance: FLUOROURACIL
     Dosage: DOSE: 708; DOSE UNIT: NOT SPECIFIED
     Route: 040
     Dates: start: 20180109, end: 20180220
  3. OXALIPLATIN. [Suspect]
     Active Substance: OXALIPLATIN
     Indication: GASTRIC CANCER
     Dosage: 150 MG
     Route: 042
     Dates: start: 20180109, end: 20180220
  4. CALCIUM FOLINATE [Suspect]
     Active Substance: LEUCOVORIN CALCIUM
     Indication: GASTRIC CANCER
     Dosage: DOSE: 354; DOSE UNIT: NOT SPECIFIED
     Route: 042
     Dates: start: 20180109, end: 20180220

REACTIONS (1)
  - Neutropenia [Unknown]

NARRATIVE: CASE EVENT DATE: 20180306
